FAERS Safety Report 8108169-2 (Version None)
Quarter: 2011Q4

REPORT INFORMATION
  Report Type: 
  Country: None (occurrence: None)
  Receive Date: 20111223
  Receipt Date: 20110415
  Transmission Date: 20120403
  Serious: Yes (Other)
  Sender: FDA-Public Use
  Company Number: PHHY2011US32971

PATIENT
  Sex: Male

DRUGS (3)
  1. LAMICTAL [Concomitant]
  2. BACLOFEN [Concomitant]
  3. CLOZARIL [Suspect]
     Dosage: 100 MG, 8XDAY

REACTIONS (3)
  - PARANOIA [None]
  - PSYCHOTIC DISORDER [None]
  - INSOMNIA [None]
